FAERS Safety Report 14619721 (Version 4)
Quarter: 2019Q2

REPORT INFORMATION
  Report Type: Spontaneous
  Country: ES (occurrence: ES)
  Receive Date: 20180309
  Receipt Date: 20190528
  Transmission Date: 20190711
  Serious: Yes (Death, Other)
  Sender: FDA-Public Use
  Company Number: ES-UCBSA-2018008921

PATIENT
  Sex: Male

DRUGS (6)
  1. KEPPRA [Suspect]
     Active Substance: LEVETIRACETAM
     Indication: MATERNAL DRUGS AFFECTING FOETUS
  2. DEPAKINE CHRONO [Suspect]
     Active Substance: VALPROATE SODIUM
     Indication: MATERNAL DRUGS AFFECTING FOETUS
  3. LUMINAL [Suspect]
     Active Substance: PHENOBARBITAL SODIUM
     Indication: JUVENILE MYOCLONIC EPILEPSY
     Dosage: 75 MG, ONCE DAILY (QD)
     Route: 064
     Dates: start: 201706, end: 20171028
  4. DEPAKINE CHRONO [Suspect]
     Active Substance: VALPROATE SODIUM
     Indication: JUVENILE MYOCLONIC EPILEPSY
     Dosage: 1000 MG, DAILY
     Route: 064
     Dates: start: 201706, end: 20171028
  5. LUMINAL [Suspect]
     Active Substance: PHENOBARBITAL SODIUM
     Indication: MATERNAL USE OF ILLICIT DRUGS
  6. KEPPRA [Suspect]
     Active Substance: LEVETIRACETAM
     Indication: JUVENILE MYOCLONIC EPILEPSY
     Dosage: 3000 MG, DAILY
     Route: 064
     Dates: start: 201706

REACTIONS (2)
  - Neural tube defect [Fatal]
  - Maternal exposure during pregnancy [Unknown]

NARRATIVE: CASE EVENT DATE: 201706
